FAERS Safety Report 20556114 (Version 1)
Quarter: 2022Q1

REPORT INFORMATION
  Report Type: Spontaneous
  Country: US (occurrence: US)
  Receive Date: 20220304
  Receipt Date: 20220304
  Transmission Date: 20220424
  Serious: Yes (Other)
  Sender: FDA-Public Use
  Company Number: US-PURDUE-USA-2020-0284539

PATIENT
  Sex: Female

DRUGS (28)
  1. OXYCONTIN [Suspect]
     Active Substance: OXYCODONE HYDROCHLORIDE
     Indication: Neck pain
     Dosage: UNKNOWN
     Route: 048
  2. OXYCONTIN [Suspect]
     Active Substance: OXYCODONE HYDROCHLORIDE
     Indication: Back pain
  3. OXYCODONE HYDROCHLORIDE [Suspect]
     Active Substance: OXYCODONE HYDROCHLORIDE
     Indication: Neck pain
     Dosage: UNKNOWN
     Route: 048
  4. OXYCODONE HYDROCHLORIDE [Suspect]
     Active Substance: OXYCODONE HYDROCHLORIDE
     Indication: Back pain
  5. DILAUDID [Suspect]
     Active Substance: HYDROMORPHONE HYDROCHLORIDE
     Indication: Neck pain
     Dosage: UNKNOWN
     Route: 048
  6. DILAUDID [Suspect]
     Active Substance: HYDROMORPHONE HYDROCHLORIDE
     Indication: Back pain
  7. MS CONTIN [Suspect]
     Active Substance: MORPHINE SULFATE
     Indication: Neck pain
     Dosage: UNKNOWN
     Route: 048
  8. MS CONTIN [Suspect]
     Active Substance: MORPHINE SULFATE
     Indication: Back pain
  9. HYDROCODONE BITARTRATE AND ACETAMINOPHEN [Suspect]
     Active Substance: ACETAMINOPHEN\HYDROCODONE BITARTRATE
     Indication: Neck pain
     Dosage: UNKNOWN
     Route: 048
  10. HYDROCODONE BITARTRATE AND ACETAMINOPHEN [Suspect]
     Active Substance: ACETAMINOPHEN\HYDROCODONE BITARTRATE
     Indication: Back pain
  11. MORPHINE SULFATE [Suspect]
     Active Substance: MORPHINE SULFATE
     Indication: Neck pain
     Dosage: UNKNOWN
     Route: 048
  12. MORPHINE SULFATE [Suspect]
     Active Substance: MORPHINE SULFATE
     Indication: Back pain
  13. HYDROMORPHONE [Suspect]
     Active Substance: HYDROMORPHONE
     Indication: Neck pain
     Dosage: UNKNOWN
     Route: 048
  14. HYDROMORPHONE [Suspect]
     Active Substance: HYDROMORPHONE
     Indication: Back pain
  15. MORPHINE SULFATE [Suspect]
     Active Substance: MORPHINE SULFATE
     Indication: Neck pain
     Dosage: UNKNOWN
     Route: 048
  16. MORPHINE SULFATE [Suspect]
     Active Substance: MORPHINE SULFATE
     Indication: Back pain
  17. ROXICODONE [Suspect]
     Active Substance: OXYCODONE HYDROCHLORIDE
     Indication: Neck pain
     Dosage: UNKNOWN
     Route: 065
  18. ROXICODONE [Suspect]
     Active Substance: OXYCODONE HYDROCHLORIDE
     Indication: Back pain
  19. AVINZA [Suspect]
     Active Substance: MORPHINE SULFATE
     Indication: Neck pain
     Dosage: UNKNOWN
     Route: 065
  20. AVINZA [Suspect]
     Active Substance: MORPHINE SULFATE
     Indication: Back pain
  21. METHADONE [Suspect]
     Active Substance: METHADONE HYDROCHLORIDE
     Indication: Neck pain
     Dosage: UNKNOWN
     Route: 065
  22. METHADONE [Suspect]
     Active Substance: METHADONE HYDROCHLORIDE
     Indication: Back pain
  23. NORCO [Suspect]
     Active Substance: ACETAMINOPHEN\HYDROCODONE BITARTRATE
     Indication: Neck pain
     Dosage: UNKNOWN
     Route: 065
  24. NORCO [Suspect]
     Active Substance: ACETAMINOPHEN\HYDROCODONE BITARTRATE
     Indication: Back pain
  25. FENTANYL [Suspect]
     Active Substance: FENTANYL
     Indication: Neck pain
     Dosage: UNKNOWN
     Route: 065
  26. FENTANYL [Suspect]
     Active Substance: FENTANYL
     Indication: Back pain
  27. CODEINE [Suspect]
     Active Substance: CODEINE
     Indication: Neck pain
     Dosage: UNKNOWN
     Route: 065
  28. CODEINE [Suspect]
     Active Substance: CODEINE
     Indication: Back pain

REACTIONS (9)
  - Drug dependence [Unknown]
  - Pruritus [Unknown]
  - Scar [Unknown]
  - Drug hypersensitivity [Unknown]
  - Rash [Unknown]
  - Tooth disorder [Unknown]
  - Emotional distress [Unknown]
  - Stress [Unknown]
  - Anxiety [Unknown]
